FAERS Safety Report 11610416 (Version 1)
Quarter: 2015Q4

REPORT INFORMATION
  Report Type: Spontaneous
  Country: JP (occurrence: JP)
  Receive Date: 20151008
  Receipt Date: 20151008
  Transmission Date: 20160304
  Serious: Yes (Hospitalization, Other)
  Sender: FDA-Public Use
  Company Number: JP-PFIZER INC-2015331565

PATIENT
  Age: 53 Year
  Sex: Male
  Weight: 61 kg

DRUGS (33)
  1. CAMPTO [Suspect]
     Active Substance: IRINOTECAN
     Dosage: 210 MG, 1X/DAY
     Route: 041
     Dates: start: 20140808, end: 20140808
  2. CAMPTO [Suspect]
     Active Substance: IRINOTECAN
     Dosage: 210 MG, 1X/DAY
     Route: 041
     Dates: start: 20141105, end: 20141105
  3. LEVOFOLINATE YAKULT [Suspect]
     Active Substance: LEVOLEUCOVORIN CALCIUM
     Dosage: 350 MG, 1X/DAY
     Route: 041
     Dates: start: 20141006, end: 20141006
  4. LEVOFOLINATE YAKULT [Suspect]
     Active Substance: LEVOLEUCOVORIN CALCIUM
     Dosage: 350 MG, 1X/DAY
     Route: 041
     Dates: start: 20141216, end: 20141216
  5. ELPLAT [Suspect]
     Active Substance: OXALIPLATIN
     Dosage: 90 MG, 1X/DAY
     Route: 041
     Dates: start: 20140922, end: 20140922
  6. LEVOFOLINATE YAKULT [Suspect]
     Active Substance: LEVOLEUCOVORIN CALCIUM
     Dosage: 350 MG, 1X/DAY
     Route: 041
     Dates: start: 20141105, end: 20141105
  7. LEVOFOLINATE YAKULT [Suspect]
     Active Substance: LEVOLEUCOVORIN CALCIUM
     Indication: PANCREATIC CARCINOMA
     Dosage: 350 MG, 1X/DAY
     Route: 041
     Dates: start: 20140701, end: 20140701
  8. LEVOFOLINATE YAKULT [Suspect]
     Active Substance: LEVOLEUCOVORIN CALCIUM
     Dosage: 350 MG, 1X/DAY
     Route: 041
     Dates: start: 20140822, end: 20140822
  9. LEVOFOLINATE YAKULT [Suspect]
     Active Substance: LEVOLEUCOVORIN CALCIUM
     Dosage: 350 MG, 1X/DAY
     Route: 041
     Dates: start: 20140922, end: 20140922
  10. CAMPTO [Suspect]
     Active Substance: IRINOTECAN
     Dosage: 210 MG, 1X/DAY
     Route: 041
     Dates: start: 20140822, end: 20140822
  11. ELPLAT [Suspect]
     Active Substance: OXALIPLATIN
     Dosage: 115 MG, 1X/DAY
     Route: 041
     Dates: start: 20140722, end: 20140722
  12. LEVOFOLINATE YAKULT [Suspect]
     Active Substance: LEVOLEUCOVORIN CALCIUM
     Dosage: 350 MG, 1X/DAY
     Route: 041
     Dates: start: 20140722, end: 20140722
  13. LEVOFOLINATE YAKULT [Suspect]
     Active Substance: LEVOLEUCOVORIN CALCIUM
     Dosage: 350 MG, 1X/DAY
     Route: 041
     Dates: start: 20141119, end: 20141119
  14. CAMPTO [Suspect]
     Active Substance: IRINOTECAN
     Indication: PANCREATIC CARCINOMA
     Dosage: 260 MG, 1X/DAY
     Route: 041
     Dates: start: 20140701, end: 20140701
  15. CAMPTO [Suspect]
     Active Substance: IRINOTECAN
     Dosage: 210 MG, 1X/DAY
     Route: 041
     Dates: start: 20141006, end: 20141006
  16. CAMPTO [Suspect]
     Active Substance: IRINOTECAN
     Dosage: 210 MG, 1X/DAY
     Route: 041
     Dates: start: 20141119, end: 20141119
  17. ELPLAT [Suspect]
     Active Substance: OXALIPLATIN
     Dosage: 90 MG, 1X/DAY
     Route: 041
     Dates: start: 20140908, end: 20140908
  18. ELPLAT [Suspect]
     Active Substance: OXALIPLATIN
     Dosage: 90 MG, 1X/DAY
     Route: 041
     Dates: start: 20141006, end: 20141006
  19. LEVOFOLINATE YAKULT [Suspect]
     Active Substance: LEVOLEUCOVORIN CALCIUM
     Dosage: 350 MG, 1X/DAY
     Route: 041
     Dates: start: 20140808, end: 20140808
  20. LEVOFOLINATE YAKULT [Suspect]
     Active Substance: LEVOLEUCOVORIN CALCIUM
     Dosage: 350 MG, 1X/DAY
     Route: 041
     Dates: start: 20140908, end: 20140908
  21. LEVOFOLINATE YAKULT [Suspect]
     Active Substance: LEVOLEUCOVORIN CALCIUM
     Dosage: UNK
  22. CAMPTO [Suspect]
     Active Substance: IRINOTECAN
     Dosage: 260 MG, 1X/DAY
     Route: 041
     Dates: start: 20140722, end: 20140722
  23. CAMPTO [Suspect]
     Active Substance: IRINOTECAN
     Dosage: 210 MG, 1X/DAY
     Route: 041
     Dates: start: 20141216, end: 20141216
  24. ELPLAT [Suspect]
     Active Substance: OXALIPLATIN
     Indication: PANCREATIC CARCINOMA
     Dosage: 150 MG, 1X/DAY
     Route: 041
     Dates: start: 20140701, end: 20140701
  25. ELPLAT [Suspect]
     Active Substance: OXALIPLATIN
     Dosage: 115 MG, 1X/DAY
     Route: 041
     Dates: start: 20140808, end: 20140808
  26. LEVOFOLINATE YAKULT [Suspect]
     Active Substance: LEVOLEUCOVORIN CALCIUM
     Dosage: 350 MG, 1X/DAY
     Route: 041
     Dates: start: 20141022, end: 20141022
  27. 5-FU [Concomitant]
     Active Substance: FLUOROURACIL
     Indication: PANCREATIC CARCINOMA
     Dosage: UNK
     Dates: start: 20140701, end: 20141216
  28. CAMPTO [Suspect]
     Active Substance: IRINOTECAN
     Dosage: 210 MG, 1X/DAY
     Route: 041
     Dates: start: 20140922, end: 20140922
  29. ELPLAT [Suspect]
     Active Substance: OXALIPLATIN
     Dosage: 90 MG, 1X/DAY
     Route: 041
     Dates: start: 20141022, end: 20141022
  30. CAMPTO [Suspect]
     Active Substance: IRINOTECAN
     Dosage: 210 MG, 1X/DAY
     Route: 041
     Dates: start: 20140908, end: 20140908
  31. CAMPTO [Suspect]
     Active Substance: IRINOTECAN
     Dosage: 210 MG, 1X/DAY
     Route: 041
     Dates: start: 20141022, end: 20141022
  32. CAMPTO [Suspect]
     Active Substance: IRINOTECAN
     Dosage: UNK
  33. ELPLAT [Suspect]
     Active Substance: OXALIPLATIN
     Dosage: 115 MG, 1X/DAY
     Route: 041
     Dates: start: 20140822, end: 20140822

REACTIONS (13)
  - Neutrophil count decreased [Recovered/Resolved]
  - Nausea [Not Recovered/Not Resolved]
  - Blood bilirubin increased [Recovered/Resolved]
  - Haemoglobin decreased [Not Recovered/Not Resolved]
  - Vomiting [Not Recovered/Not Resolved]
  - Decreased appetite [Not Recovered/Not Resolved]
  - Duodenal stenosis [Unknown]
  - White blood cell count decreased [Recovered/Resolved]
  - Pyrexia [Recovered/Resolved]
  - Biliary tract infection [Unknown]
  - Diarrhoea [Recovered/Resolved]
  - Fatigue [Not Recovered/Not Resolved]
  - Peripheral sensory neuropathy [Not Recovered/Not Resolved]

NARRATIVE: CASE EVENT DATE: 20140718
